FAERS Safety Report 11152760 (Version 8)
Quarter: 2019Q2

REPORT INFORMATION
  Report Type: Spontaneous
  Country: FR (occurrence: FR)
  Receive Date: 20150601
  Receipt Date: 20190620
  Transmission Date: 20190711
  Serious: Yes (Hospitalization, Other)
  Sender: FDA-Public Use
  Company Number: PHHY2015FR063668

PATIENT
  Age: 34 Year
  Sex: Female

DRUGS (16)
  1. SUFENTANIL [Suspect]
     Active Substance: SUFENTANIL
     Indication: SPINAL PAIN
  2. PARACETAMOL [Suspect]
     Active Substance: ACETAMINOPHEN
     Indication: ANALGESIC THERAPY
     Dosage: 1 G, QID
     Route: 048
  3. PARACETAMOL [Suspect]
     Active Substance: ACETAMINOPHEN
     Dosage: 4 G, QID
     Route: 048
  4. SUFENTANIL [Suspect]
     Active Substance: SUFENTANIL
     Indication: ANAESTHESIA
     Dosage: 0.25 UG/ML, UNK (20 ML OF A SOLUTION OF 1 MG/ML ROPIVACAINE AND 0.25 ?G/ML SUFENTANIL)
     Route: 008
  5. ADRENALIN [Suspect]
     Active Substance: EPINEPHRINE
     Indication: ANAESTHESIA
     Dosage: 1 DF, UNK
     Route: 008
  6. ADRENALIN [Suspect]
     Active Substance: EPINEPHRINE
     Dosage: 2 MG, QD
     Route: 008
  7. LIDOCAINE. [Suspect]
     Active Substance: LIDOCAINE
     Indication: SPINAL PAIN
     Dosage: 15 ML, UNK
     Route: 065
  8. KETOPROFEN. [Suspect]
     Active Substance: KETOPROFEN
     Indication: PAIN
     Dosage: 50 MG, QID
     Route: 048
  9. ASPIRIN. [Suspect]
     Active Substance: ASPIRIN
     Indication: PRODUCT USED FOR UNKNOWN INDICATION
     Dosage: UNK
     Route: 065
  10. ROPIVACAIN HCL [Suspect]
     Active Substance: ROPIVACAINE HYDROCHLORIDE
     Indication: SPINAL PAIN
  11. MORPHINE [Suspect]
     Active Substance: MORPHINE
     Indication: ANALGESIC THERAPY
     Dosage: 2 MG, QID
     Route: 008
  12. LIDOCAINE. [Suspect]
     Active Substance: LIDOCAINE
     Dosage: 300 MG, TOTAL
     Route: 008
  13. LIDOCAINE. [Suspect]
     Active Substance: LIDOCAINE
     Indication: ANAESTHESIA
     Dosage: 20 MG/ML, (15 ML OF LIDOCAINE 20MG/ML WITH ADRENALIN)
     Route: 065
  14. ROPIVACAIN HCL [Suspect]
     Active Substance: ROPIVACAINE HYDROCHLORIDE
     Indication: ANAESTHESIA
     Dosage: 1 MG/ML, UNK (20 ML OF A SOLUTION OF 1 MG/ML ROPIVACAINE AND 0.25 ?G/ML SUFENTANIL)
     Route: 008
  15. NEFOPAM [Suspect]
     Active Substance: NEFOPAM
     Indication: ANALGESIC THERAPY
     Dosage: 40 MG, QID
     Route: 065
  16. ENOXAPARIN [Suspect]
     Active Substance: ENOXAPARIN
     Indication: THROMBOSIS PROPHYLAXIS
     Dosage: 40 MG, QD
     Route: 058

REACTIONS (12)
  - Gait disturbance [Recovered/Resolved]
  - Neuropathy peripheral [Recovered/Resolved]
  - Product use issue [Unknown]
  - Spinal epidural haemorrhage [Recovered/Resolved]
  - Nervous system disorder [Recovered/Resolved]
  - Paraesthesia [Recovered/Resolved]
  - Foetal heart rate abnormal [Unknown]
  - Epidural haemorrhage [Recovered/Resolved]
  - Live birth [Unknown]
  - Peripheral nerve injury [Recovered/Resolved]
  - Maternal exposure during pregnancy [Recovered/Resolved]
  - Epistaxis [Unknown]
